FAERS Safety Report 4428705-7 (Version None)
Quarter: 2004Q3

REPORT INFORMATION
  Report Type: 
  Country: None (occurrence: None)
  Receive Date: 20040818
  Receipt Date: 20031230
  Transmission Date: 20050211
  Serious: Yes (Hospitalization)
  Sender: FDA-Public Use
  Company Number: US-BRISTOL-MYERS SQUIBB COMPANY-12467148

PATIENT
  Age: 74 Year
  Sex: Female
  Weight: 88 kg

DRUGS (6)
  1. TEQUIN [Suspect]
     Indication: BRONCHITIS ACUTE
     Route: 048
     Dates: start: 20031227, end: 20031227
  2. ALLOPURINOL [Concomitant]
  3. VASOTEC [Concomitant]
  4. TUSSIONEX [Concomitant]
     Dates: start: 20031226
  5. ADVAIR DISKUS 100/50 [Concomitant]
  6. MULTIVITAMIN [Concomitant]
     Dosage: DOSAGE FORM = TABLET

REACTIONS (2)
  - DYSPNOEA [None]
  - OEDEMA PERIPHERAL [None]
